FAERS Safety Report 7609644-7 (Version None)
Quarter: 2011Q3

REPORT INFORMATION
  Report Type: 
  Country: None (occurrence: None)
  Receive Date: 20110714
  Receipt Date: 20110708
  Transmission Date: 20111222
  Serious: Yes (Death, Life-Threatening, Hospitalization)
  Sender: FDA-Public Use
  Company Number: MX-BRISTOL-MYERS SQUIBB COMPANY-15892615

PATIENT
  Age: 78 Year
  Sex: Male

DRUGS (4)
  1. PLACEBO [Suspect]
     Indication: PROSTATE CANCER
     Route: 042
     Dates: start: 20110407, end: 20110611
  2. IPILIMUMAB [Suspect]
     Indication: PROSTATE CANCER
     Dosage: 1 DF:542 UNIT NOT  CLEAR
     Route: 042
     Dates: start: 20110407, end: 20110611
  3. ONDANSETRON [Concomitant]
     Dates: start: 20110611
  4. OMEPRAZOLE [Concomitant]
     Dates: start: 20110414

REACTIONS (4)
  - NAUSEA [None]
  - VOMITING [None]
  - RENAL FAILURE [None]
  - GASTROINTESTINAL HAEMORRHAGE [None]
